FAERS Safety Report 5663045-X (Version None)
Quarter: 2008Q1

REPORT INFORMATION
  Report Type: 
  Country: None (occurrence: None)
  Receive Date: 20080313
  Receipt Date: 20080311
  Transmission Date: 20080703
  Serious: Yes (Hospitalization)
  Sender: FDA-Public Use
  Company Number: AU-JNJFOC-20070605939

PATIENT
  Age: 85 Year
  Sex: Male

DRUGS (9)
  1. GALANTAMINE HYDROBROMIDE [Suspect]
     Indication: DEMENTIA
     Dosage: INITIATED 2 YEARS AGO
  2. ERGOCALCIFEROL [Concomitant]
     Dosage: MORE THAN 3 YEARS
  3. IRBESARTAN [Concomitant]
     Indication: HYPERTENSION
     Dosage: MORE THAN 3 YEARS
  4. CALTRATE [Concomitant]
     Dosage: FOR MORE THAN 3 YEARS
  5. VITAMIN B [Concomitant]
  6. ACETAMINOPHEN [Concomitant]
     Dosage: FOR MORE THAN 3 YEARS
  7. CLOPIDOGREL [Concomitant]
     Dosage: MORE THAN 3 YEARS
  8. SIMVASTATIN [Concomitant]
  9. PANTOPRAZOLE SODIUM [Concomitant]
     Dosage: MORE THAN 3 YEARS

REACTIONS (16)
  - AGITATION [None]
  - CONFUSIONAL STATE [None]
  - DIARRHOEA [None]
  - ELECTROCARDIOGRAM QT PROLONGED [None]
  - FALL [None]
  - HYPOTENSION [None]
  - INJURY [None]
  - LACERATION [None]
  - LOSS OF CONSCIOUSNESS [None]
  - NAUSEA [None]
  - SINUS BRADYCARDIA [None]
  - SKIN LACERATION [None]
  - SPINAL FRACTURE [None]
  - SYNCOPE [None]
  - TOOTH LOSS [None]
  - VOMITING [None]
